FAERS Safety Report 10767474 (Version 1)
Quarter: 2015Q1

REPORT INFORMATION
  Report Type: Spontaneous
  Country: FI (occurrence: FI)
  Receive Date: 20150205
  Receipt Date: 20150205
  Transmission Date: 20150721
  Serious: Yes (Life-Threatening, Disabling, Other)
  Sender: FDA-Public Use
  Company Number: FI-PFIZER INC-2015043748

PATIENT
  Age: 56 Year
  Sex: Female

DRUGS (15)
  1. KETIPINOR [Concomitant]
     Indication: AFFECTIVE DISORDER
     Dosage: UNK
  2. EDRONAX [Concomitant]
     Active Substance: REBOXETINE MESYLATE
     Indication: DEPRESSION
     Dosage: UNK
     Dates: start: 2003, end: 2014
  3. CARDACE [Suspect]
     Active Substance: RAMIPRIL
     Indication: HYPERTENSION
     Dosage: 2.5 MG, DAILY
     Route: 048
     Dates: start: 20130912, end: 201404
  4. METFOREM [Concomitant]
     Active Substance: METFORMIN HYDROCHLORIDE
     Indication: DIABETES MELLITUS
     Dosage: UNK
     Dates: start: 2012, end: 201406
  5. NEXIUM [Concomitant]
     Active Substance: ESOMEPRAZOLE MAGNESIUM
     Indication: GASTROOESOPHAGEAL REFLUX DISEASE
  6. TENOX [Concomitant]
     Active Substance: TEMAZEPAM
     Indication: INSOMNIA
     Dosage: UNK
     Dates: end: 201406
  7. CLIOVELLE [Concomitant]
     Indication: MENOPAUSAL SYMPTOMS
     Dosage: UNK
     Dates: start: 2011, end: 201410
  8. METOPROLOL TARTRATE. [Concomitant]
     Active Substance: METOPROLOL TARTRATE
     Indication: HYPERTENSION
     Dosage: UNK
     Dates: start: 2012, end: 201406
  9. MELATONIN [Concomitant]
     Active Substance: MELATONIN
     Dosage: UNK
     Dates: start: 2013
  10. IMODIUM [Concomitant]
     Active Substance: LOPERAMIDE HYDROCHLORIDE
     Dosage: UNK
  11. JANUVIA [Concomitant]
     Active Substance: SITAGLIPTIN PHOSPHATE
     Dosage: UNK
  12. REPAGLINIDE. [Concomitant]
     Active Substance: REPAGLINIDE
     Dosage: UNK
  13. RAMIPRIL. [Suspect]
     Active Substance: RAMIPRIL
     Indication: HYPERTENSION
     Dosage: 5 MG, DAILY
     Dates: start: 20140326, end: 201404
  14. NEXIUM [Concomitant]
     Active Substance: ESOMEPRAZOLE MAGNESIUM
     Indication: GASTRITIS
     Dosage: UNK
     Dates: start: 2002
  15. THYROXIN [Concomitant]
     Active Substance: LEVOTHYROXINE
     Indication: THYROIDITIS
     Dosage: UNK
     Dates: start: 2009

REACTIONS (8)
  - Dyspnoea [Unknown]
  - General physical health deterioration [Unknown]
  - Loss of consciousness [Unknown]
  - Asthenia [Unknown]
  - Dysphonia [Unknown]
  - Fear [Unknown]
  - Cough [Unknown]
  - Rash [Unknown]

NARRATIVE: CASE EVENT DATE: 201311
